FAERS Safety Report 8456991-5 (Version None)
Quarter: 2012Q2

REPORT INFORMATION
  Report Type: 
  Country: None (occurrence: None)
  Receive Date: 20120614
  Receipt Date: 20120606
  Transmission Date: 20120825
  Serious: Yes (Death)
  Sender: FDA-Public Use
  Company Number: ADR-2012-01101

PATIENT
  Age: 54 Year
  Sex: Female

DRUGS (1)
  1. LIORESAL [Suspect]
     Dosage: 199.8 MCG/DAY

REACTIONS (1)
  - DEATH [None]
